FAERS Safety Report 21663384 (Version 1)
Quarter: 2022Q4

REPORT INFORMATION
  Report Type: Spontaneous
  Country: CN (occurrence: CN)
  Receive Date: 20221130
  Receipt Date: 20221130
  Transmission Date: 20230113
  Serious: Yes (Other)
  Sender: FDA-Public Use
  Company Number: CN-MLMSERVICE-20221118-3928260-1

PATIENT
  Age: 37 Year
  Sex: Female

DRUGS (6)
  1. IRINOTECAN HYDROCHLORIDE [Suspect]
     Active Substance: IRINOTECAN HYDROCHLORIDE
     Indication: Adenocarcinoma gastric
     Dosage: FOURTH-LINE TREATMENT, CYCLIC(2 CYCLES+5 CYCLES)
     Dates: start: 20211027, end: 20220323
  2. IRINOTECAN HYDROCHLORIDE [Suspect]
     Active Substance: IRINOTECAN HYDROCHLORIDE
     Indication: Metastases to liver
  3. ATEZOLIZUMAB [Suspect]
     Active Substance: ATEZOLIZUMAB
     Indication: Metastases to liver
     Dosage: FOURTH-LINE TREATMENT, CYCLIC(2 CYCLES+5 CYCLES)
     Dates: start: 20211027, end: 20220323
  4. ATEZOLIZUMAB [Suspect]
     Active Substance: ATEZOLIZUMAB
     Indication: Adenocarcinoma gastric
  5. SURUFATINIB [Suspect]
     Active Substance: SURUFATINIB
     Indication: Metastases to liver
     Dosage: FOURTH-LINE TREATMENT, CYCLIC(2 CYCLES+5 CYCLES)
     Dates: start: 20211027, end: 20220323
  6. SURUFATINIB [Suspect]
     Active Substance: SURUFATINIB
     Indication: Adenocarcinoma gastric

REACTIONS (5)
  - Myelosuppression [Recovering/Resolving]
  - Vomiting [Recovering/Resolving]
  - Nausea [Recovering/Resolving]
  - Abdominal discomfort [Unknown]
  - Prone position [Unknown]
